FAERS Safety Report 23706314 (Version 1)
Quarter: 2024Q2

REPORT INFORMATION
  Report Type: Report from Study
  Country: US (occurrence: US)
  Receive Date: 20240404
  Receipt Date: 20240404
  Transmission Date: 20240716
  Serious: Yes (Other)
  Sender: FDA-Public Use
  Company Number: US-ABBVIE-5672262

PATIENT
  Age: 71 Year
  Sex: Female
  Weight: 81.646 kg

DRUGS (3)
  1. HUMIRA [Suspect]
     Active Substance: ADALIMUMAB
     Indication: Psoriatic arthropathy
     Dosage: FORM STRENGTH: 40 MG
     Route: 058
  2. HUMIRA [Suspect]
     Active Substance: ADALIMUMAB
     Dosage: FORM STRENGTH: 40 MG
     Route: 058
     Dates: start: 20190411
  3. HUMIRA [Suspect]
     Active Substance: ADALIMUMAB
     Dosage: FORM STRENGTH: 40 MG
     Route: 058

REACTIONS (6)
  - Knee operation [Recovered/Resolved]
  - Limb operation [Recovered/Resolved]
  - Knee arthroplasty [Recovered/Resolved]
  - Calcinosis [Recovered/Resolved]
  - Arthropathy [Unknown]
  - Trigger finger [Recovered/Resolved]

NARRATIVE: CASE EVENT DATE: 20221018
